FAERS Safety Report 22198770 (Version 1)
Quarter: 2023Q2

REPORT INFORMATION
  Report Type: Spontaneous
  Country: US (occurrence: None)
  Receive Date: 20230411
  Receipt Date: 20230411
  Transmission Date: 20230721
  Serious: Yes (Life-Threatening, Hospitalization)
  Sender: FDA-Public Use
  Company Number: None

PATIENT
  Age: 85 Year
  Sex: Male
  Weight: 69 kg

DRUGS (1)
  1. SULFAMETHIZOLE\TRIMETHOPRIM [Suspect]
     Active Substance: SULFAMETHIZOLE\TRIMETHOPRIM
     Indication: Diabetic foot
     Dosage: FREQUENCY : TWICE A DAY;?
     Route: 048
     Dates: start: 20230118, end: 20230123

REACTIONS (7)
  - Vomiting [None]
  - Dyspnoea [None]
  - Acute kidney injury [None]
  - Hyperkalaemia [None]
  - Diastolic dysfunction [None]
  - Peripheral artery stenosis [None]
  - Unresponsive to stimuli [None]

NARRATIVE: CASE EVENT DATE: 20230123
